FAERS Safety Report 16834853 (Version 1)
Quarter: 2019Q3

REPORT INFORMATION
  Report Type: Spontaneous
  Country: US (occurrence: US)
  Receive Date: 20190920
  Receipt Date: 20190920
  Transmission Date: 20191005
  Serious: No
  Sender: FDA-Public Use
  Company Number: US-SUNOVION-2019SUN003802

PATIENT
  Age: 14 Year
  Sex: Male
  Weight: 113 kg

DRUGS (2)
  1. LATUDA [Suspect]
     Active Substance: LURASIDONE HYDROCHLORIDE
     Indication: BIPOLAR DISORDER
     Dosage: 40 MG, BID
     Route: 048
  2. LATUDA [Suspect]
     Active Substance: LURASIDONE HYDROCHLORIDE
     Indication: AUTISM SPECTRUM DISORDER
     Dosage: 80 MG, IN THE MORNING
     Route: 048

REACTIONS (2)
  - Off label use [Unknown]
  - Somnolence [Unknown]
